FAERS Safety Report 11456052 (Version 2)
Quarter: 2015Q4

REPORT INFORMATION
  Report Type: Spontaneous
  Country: HR (occurrence: HR)
  Receive Date: 20150903
  Receipt Date: 20151016
  Transmission Date: 20160304
  Serious: Yes (Hospitalization, Other)
  Sender: FDA-Public Use
  Company Number: HR-PFIZER INC-2015289464

PATIENT
  Age: 60 Year
  Sex: Male
  Weight: 75 kg

DRUGS (4)
  1. TERTENSIF SR [Concomitant]
     Indication: MYOCARDIAL INFARCTION
     Dosage: 1.5 MG, 1X/DAY
     Route: 048
     Dates: start: 2014
  2. VAL [Concomitant]
     Indication: MYOCARDIAL INFARCTION
     Dosage: 160 MG, 1X/DAY
     Route: 048
     Dates: start: 2012
  3. SORTIS [Suspect]
     Active Substance: ATORVASTATIN
     Indication: DYSLIPIDAEMIA
     Dosage: 20 MG, 1X/DAY
     Route: 048
     Dates: start: 2013, end: 20150615
  4. CONCOR COR [Concomitant]
     Active Substance: BISOPROLOL FUMARATE
     Indication: ACUTE MYOCARDIAL INFARCTION
     Dosage: 1.25 MG, 1X/DAY
     Route: 048
     Dates: start: 2013

REACTIONS (3)
  - Polymyalgia rheumatica [Recovered/Resolved]
  - Faeces discoloured [Recovered/Resolved]
  - Myopathy [Recovered/Resolved]

NARRATIVE: CASE EVENT DATE: 2015
